FAERS Safety Report 10064366 (Version 1)
Quarter: 2014Q2

REPORT INFORMATION
  Report Type: Spontaneous
  Country: US (occurrence: None)
  Receive Date: 20140407
  Receipt Date: 20140407
  Transmission Date: 20141212
  Serious: Yes (Life-Threatening, Hospitalization)
  Sender: FDA-Public Use
  Company Number: None

PATIENT
  Age: 62 Year
  Sex: Female
  Weight: 78.02 kg

DRUGS (1)
  1. EMEND [Suspect]
     Indication: NAUSEA
     Dosage: PORT FOR 20 MINS. INTO A VEIN
     Dates: start: 20140403, end: 20140403

REACTIONS (5)
  - Urticaria [None]
  - Unresponsive to stimuli [None]
  - Erythema [None]
  - Pulse absent [None]
  - Blood pressure immeasurable [None]
